FAERS Safety Report 8300415 (Version 3)
Quarter: 2016Q4

REPORT INFORMATION
  Report Type: Spontaneous
  Country: US (occurrence: US)
  Receive Date: 20111219
  Receipt Date: 20161230
  Transmission Date: 20170207
  Serious: No
  Sender: FDA-Public Use
  Company Number: US-ASTRAZENECA-2011SE18060

PATIENT
  Age: 719 Month
  Sex: Female
  Weight: 72.6 kg

DRUGS (4)
  1. CRESTOR [Suspect]
     Active Substance: ROSUVASTATIN CALCIUM
     Route: 048
  2. BYDUREON [Suspect]
     Active Substance: EXENATIDE
     Dosage: 2 MG/WEEK, BYDUREON SINGLE DOSE VIAL
     Route: 058
     Dates: start: 2013, end: 201502
  3. B12 INJECTION [Concomitant]
  4. BYDUREON [Suspect]
     Active Substance: EXENATIDE
     Dosage: 2 MG/WEEK
     Route: 058
     Dates: start: 201502

REACTIONS (13)
  - Injury [Unknown]
  - Injection site nodule [Recovering/Resolving]
  - Liver disorder [Unknown]
  - Injection site haemorrhage [Unknown]
  - Intentional device misuse [Unknown]
  - Device issue [Unknown]
  - Needle issue [Unknown]
  - Product quality issue [Unknown]
  - Cardiac disorder [Unknown]
  - Scratch [Unknown]
  - Malaise [Unknown]
  - Device leakage [Unknown]
  - Product use issue [Unknown]

NARRATIVE: CASE EVENT DATE: 201502
